FAERS Safety Report 6314715-1 (Version None)
Quarter: 2009Q3

REPORT INFORMATION
  Report Type: 
  Country: None (occurrence: None)
  Receive Date: 20090819
  Receipt Date: 20090812
  Transmission Date: 20100115
  Serious: Yes (Hospitalization, Other)
  Sender: FDA-Public Use
  Company Number: US-JNJFOC-20090804263

PATIENT
  Sex: Female

DRUGS (3)
  1. TOPAMAX [Suspect]
     Indication: CONVULSION
     Route: 048
  2. VIMPAT [Suspect]
     Indication: CONVULSION
     Route: 065
  3. TEGRETOL [Suspect]
     Indication: CONVULSION
     Route: 065

REACTIONS (2)
  - HOSPITALISATION [None]
  - HYPOKALAEMIA [None]
